FAERS Safety Report 5023596-8 (Version None)
Quarter: 2006Q2

REPORT INFORMATION
  Report Type: 
  Country: None (occurrence: None)
  Receive Date: 20060612
  Receipt Date: 20060215
  Transmission Date: 20061013
  Serious: Yes (Hospitalization)
  Sender: FDA-Public Use
  Company Number: GB-AVENTIS-200611461GDDC

PATIENT
  Sex: Male

DRUGS (2)
  1. LANTUS [Suspect]
     Route: 058
  2. AUTOPEN 24 [Suspect]

REACTIONS (2)
  - DIABETIC KETOACIDOSIS [None]
  - PHARMACEUTICAL PRODUCT COMPLAINT [None]
